FAERS Safety Report 6635679-7 (Version None)
Quarter: 2010Q1

REPORT INFORMATION
  Report Type: 
  Country: None (occurrence: None)
  Receive Date: 20100312
  Receipt Date: 20100312
  Transmission Date: 20100710
  Serious: Yes (Other)
  Sender: FDA-Public Use
  Company Number: None

PATIENT
  Age: 54 Year
  Sex: Male
  Weight: 74.8435 kg

DRUGS (10)
  1. ZOMETA [Suspect]
     Indication: PROSTATE CANCER METASTATIC
     Dosage: 4 MG 6 WEEKS IV DRIP
     Route: 041
     Dates: start: 20071015, end: 20090910
  2. LUPRON DEPOT [Concomitant]
  3. KETOCONAZOLE [Concomitant]
  4. DOCETAXEL [Concomitant]
  5. MITOXANTRONE [Concomitant]
  6. PACLITAXEL [Concomitant]
  7. CYCLOPHOSPHAMIDE [Concomitant]
  8. DEXAMETHASONE [Concomitant]
  9. MORPHINE [Concomitant]
  10. DURAGESIC-100 [Concomitant]

REACTIONS (2)
  - OSTEONECROSIS [None]
  - PERIODONTAL INFECTION [None]
